FAERS Safety Report 19030463 (Version 5)
Quarter: 2022Q3

REPORT INFORMATION
  Report Type: Spontaneous
  Country: US (occurrence: None)
  Receive Date: 20210319
  Receipt Date: 20220707
  Transmission Date: 20221027
  Serious: Yes (Hospitalization, Other)
  Sender: FDA-Public Use
  Company Number: US-ROCHE-2791343

PATIENT
  Age: 65 Year
  Sex: Male
  Weight: 95.340 kg

DRUGS (22)
  1. OCREVUS [Suspect]
     Active Substance: OCRELIZUMAB
     Indication: Secondary progressive multiple sclerosis
     Dosage: ON 30/SEP/2020, HE RECEIVED LAST INFUSION OF OCRELIZUMAB.?300MG DAY ONE AND 300 MG DAY 15 THEN INFUS
     Route: 042
     Dates: start: 201902
  2. SOLU-MEDROL [Concomitant]
     Active Substance: METHYLPREDNISOLONE SODIUM SUCCINATE
     Route: 042
     Dates: start: 20200821
  3. ALPRAZOLAM [Concomitant]
     Active Substance: ALPRAZOLAM
     Indication: Muscle spasticity
     Dosage: TAKE 1 OR 2 PRN
  4. ATORVASTATIN [Concomitant]
     Active Substance: ATORVASTATIN
  5. BACLOFEN [Concomitant]
     Active Substance: BACLOFEN
     Dosage: TAKE 1 TABLET 3 TIMES A DAY BY ORAL ROUTE AS DIRECTED.
     Route: 048
  6. BACLOFEN [Concomitant]
     Active Substance: BACLOFEN
     Dosage: TAKE 1 TABLET BY MOUTH 5 TIMES A DAY AS DIRECTED
     Route: 048
  7. BETAMETHASONE DIPROPIONATE [Concomitant]
     Active Substance: BETAMETHASONE DIPROPIONATE
     Route: 061
  8. CYCLOBENZAPRINE [Concomitant]
     Active Substance: CYCLOBENZAPRINE
     Dosage: TAKE 1 TABLET DAILY AT BEDTIME AS NEEDED SPASMS
  9. DIAZEPAM [Concomitant]
     Active Substance: DIAZEPAM
     Indication: Muscle spasms
     Dosage: TAKE 1 TABLET BY MOUTH AT BEDTIME AS NEEDED FOR SPASMS
  10. DULOXETINE [Concomitant]
     Active Substance: DULOXETINE
     Dosage: TAKE 1 CAPSULE EVERY DAY BY ORAL ROUTE FOR 90 DAYS
     Route: 048
  11. FUROSEMIDE [Concomitant]
     Active Substance: FUROSEMIDE
     Dosage: TAKE 1 TABLET EVERY DAY BY ORAL ROUTE FOR 90 DAYS
     Route: 048
  12. GABAPENTIN [Concomitant]
     Active Substance: GABAPENTIN
     Dosage: TAKE 1 CAPSULE EVERY DAY BY ORAL ROUTE AS DIRECTED.
     Route: 048
  13. HYDRALAZINE [Concomitant]
     Active Substance: HYDRALAZINE HYDROCHLORIDE
  14. HYDRALAZINE [Concomitant]
     Active Substance: HYDRALAZINE HYDROCHLORIDE
  15. LOPRESSOR [Concomitant]
     Active Substance: METOPROLOL TARTRATE
  16. LOSARTAN [Concomitant]
     Active Substance: LOSARTAN
  17. METOPROLOL TARTRATE [Concomitant]
     Active Substance: METOPROLOL TARTRATE
     Dosage: TAKE 1 MG 3 TIMES A DAY BY ORAL ROUTE FOR 90 DAYS
     Route: 048
  18. MODAFINIL [Concomitant]
     Active Substance: MODAFINIL
     Dosage: TAKE 1 TABLET BY MOUTH EVERY DAY
     Route: 048
  19. PREDNISONE [Concomitant]
     Active Substance: PREDNISONE
     Dosage: TAKE 6 WITH BREAKFAST FOR 2 DAYS, THEN DECREASE DOSE BY 10 MG EVERY OTHER DAY
  20. METHYLPREDNISOLONE [Concomitant]
     Active Substance: METHYLPREDNISOLONE
     Route: 042
  21. DIPHENHYDRAMINE [Concomitant]
     Active Substance: DIPHENHYDRAMINE
     Route: 042
  22. TYLENOL [Concomitant]
     Active Substance: ACETAMINOPHEN
     Route: 048

REACTIONS (13)
  - Mental disorder [Recovered/Resolved]
  - Cognitive disorder [Recovered/Resolved]
  - Dehydration [Recovered/Resolved]
  - Multiple sclerosis relapse [Recovered/Resolved]
  - Fall [Unknown]
  - Finger tapping test [Recovered/Resolved]
  - Diarrhoea [Recovered/Resolved]
  - Muscular weakness [Not Recovered/Not Resolved]
  - Off label use [Unknown]
  - Urinary tract infection [Recovered/Resolved]
  - Urinary retention [Not Recovered/Not Resolved]
  - Gastroenteritis viral [Unknown]
  - Memory impairment [Unknown]

NARRATIVE: CASE EVENT DATE: 20200601
